FAERS Safety Report 9691120 (Version 1)
Quarter: 2013Q4

REPORT INFORMATION
  Report Type: Spontaneous
  Country: DE (occurrence: DE)
  Receive Date: 20131115
  Receipt Date: 20131115
  Transmission Date: 20140711
  Serious: Yes (Other)
  Sender: FDA-Public Use
  Company Number: DE-BRISTOL-MYERS SQUIBB COMPANY-19795590

PATIENT
  Age: 59 Year
  Sex: Female

DRUGS (3)
  1. ABILIFY [Suspect]
     Indication: SCHIZOPHRENIA
     Dosage: 5MG:2012 TO 26JUN13?10MG:27JUN TO 31JUL2013?15MG:01AUG2013 TO ONG
     Route: 048
     Dates: start: 20130801
  2. RISPERDAL [Suspect]
     Indication: SCHIZOPHRENIA
     Dosage: DOSE REDUCED,2012 TO 18JUN13: 2MG-0-3MG?19-26JUN13:4MG?27-07AUG:3MG?8-21AUG:2MG?22AUG TO ONG:1MG
     Route: 048
     Dates: start: 20130627
  3. L-THYROXINE [Concomitant]
     Route: 048

REACTIONS (1)
  - Tinnitus [Recovered/Resolved]
